FAERS Safety Report 21171176 (Version 1)
Quarter: 2022Q3

REPORT INFORMATION
  Report Type: Spontaneous
  Country: US (occurrence: None)
  Receive Date: 20220803
  Receipt Date: 20220803
  Transmission Date: 20221026
  Serious: No
  Sender: FDA-Public Use
  Company Number: None

PATIENT
  Age: 31 Year
  Sex: Male
  Weight: 99 kg

DRUGS (1)
  1. BEBTELOVIMAB [Suspect]
     Active Substance: BEBTELOVIMAB
     Indication: COVID-19 treatment
     Dosage: OTHER FREQUENCY : ONCE;?
     Route: 040
     Dates: start: 20220728, end: 20220728

REACTIONS (8)
  - Chest discomfort [None]
  - Feeling hot [None]
  - Swelling [None]
  - Anxiety [None]
  - Dyspnoea [None]
  - Blood pressure increased [None]
  - Vitreous floaters [None]
  - Euphoric mood [None]

NARRATIVE: CASE EVENT DATE: 20220728
